FAERS Safety Report 16736116 (Version 1)
Quarter: 2019Q3

REPORT INFORMATION
  Report Type: Spontaneous
  Country: US (occurrence: US)
  Receive Date: 20190709
  Receipt Date: 20190709
  Transmission Date: 20191005
  Serious: No
  Sender: FDA-Public Use
  Company Number: None

PATIENT
  Age: 52 Year
  Sex: Female

DRUGS (2)
  1. ENBREL [Suspect]
     Active Substance: ETANERCEPT
     Indication: RHEUMATOID ARTHRITIS
     Dosage: INJECT 50MG SUBCUTANEOUSLY ONCE  WEEKLY  USING THE AUTO TOUCH DEVICE AS DIRECTED
     Route: 058
     Dates: start: 201812
  2. ENBREL [Suspect]
     Active Substance: ETANERCEPT
     Indication: OSTEOARTHRITIS
     Dosage: INJECT 50MG SUBCUTANEOUSLY ONCE  WEEKLY  USING THE AUTO TOUCH DEVICE AS DIRECTED
     Route: 058
     Dates: start: 201812

REACTIONS (2)
  - Insomnia [None]
  - Rash pruritic [None]
